FAERS Safety Report 8806867 (Version 1)
Quarter: 2012Q4

REPORT INFORMATION
  Report Type: 
  Country: US (occurrence: US)
  Receive Date: 20120925
  Receipt Date: 20120925
  Transmission Date: 20130627
  Serious: Yes (Death, Other)
  Sender: FDA-Public Use
  Company Number: US-ROCHE-1127509

PATIENT
  Sex: Male

DRUGS (5)
  1. AVASTIN [Suspect]
     Indication: GASTRIC CANCER
     Route: 065
  2. AVASTIN [Suspect]
     Indication: METASTASES TO LIVER
  3. TAXOTERE [Concomitant]
  4. 5-FU [Concomitant]
  5. CISPLATIN [Concomitant]

REACTIONS (2)
  - Death [Fatal]
  - Disease progression [Unknown]
